FAERS Safety Report 8532463-4 (Version None)
Quarter: 2012Q3

REPORT INFORMATION
  Report Type: 
  Country: None (occurrence: None)
  Receive Date: 20120716
  Receipt Date: 20120716
  Transmission Date: 20120928
  Serious: Yes (Life-Threatening, Hospitalization)
  Sender: FDA-Public Use
  Company Number: None

PATIENT
  Age: 44 Year
  Sex: Male
  Weight: 79.8331 kg

DRUGS (1)
  1. LOVASTATIN [Suspect]
     Indication: BLOOD CHOLESTEROL
     Dosage: HALF OF TALET ONCE DAILY PO
     Route: 048
     Dates: start: 20110815, end: 20120612

REACTIONS (1)
  - UPPER GASTROINTESTINAL HAEMORRHAGE [None]
